FAERS Safety Report 9897875 (Version 2)
Quarter: 2014Q1

REPORT INFORMATION
  Report Type: Spontaneous
  Country: US (occurrence: US)
  Receive Date: 20140214
  Receipt Date: 20140306
  Transmission Date: 20141002
  Serious: No
  Sender: FDA-Public Use
  Company Number: US-PFIZER INC-2014040525

PATIENT
  Age: 63 Year
  Sex: Female

DRUGS (1)
  1. INLYTA [Suspect]
     Indication: RENAL CELL CARCINOMA
     Dosage: 5 MG, 2X/DAY

REACTIONS (11)
  - Oral herpes [Unknown]
  - Fatigue [Unknown]
  - Decreased appetite [Unknown]
  - Dysphonia [Unknown]
  - Local swelling [Unknown]
  - Cough [Unknown]
  - Increased upper airway secretion [Unknown]
  - Rhinorrhoea [Unknown]
  - Dysphagia [Unknown]
  - Stomatitis [Unknown]
  - Nasal congestion [Unknown]
